FAERS Safety Report 9240256 (Version 6)
Quarter: 2013Q4

REPORT INFORMATION
  Report Type: Spontaneous
  Country: IT (occurrence: None)
  Receive Date: 20130417
  Receipt Date: 20131002
  Transmission Date: 20140711
  Serious: Yes (Hospitalization)
  Sender: FDA-Public Use
  Company Number: AUR-APL-2013-03123

PATIENT
  Age: 64 Year
  Sex: Male

DRUGS (2)
  1. RAMIPRIL (RAMIPRIL) [Suspect]
     Indication: PRODUCT USED FOR UNKNOWN INDICATION
     Dosage: (50 DOSAGE FORMS, TOTAL), ORAL
     Route: 048
     Dates: start: 20130301, end: 20130301
  2. RAMIPRIL (RAMIPRIL) [Suspect]
     Indication: SUICIDE ATTEMPT
     Dosage: (50 DOSAGE FORMS, TOTAL), ORAL
     Route: 048
     Dates: start: 20130301, end: 20130301

REACTIONS (6)
  - Shock [None]
  - Overdose [None]
  - Drug abuse [None]
  - Suicide attempt [None]
  - Dialysis [None]
  - Blood creatinine increased [None]
